FAERS Safety Report 5961248-8 (Version None)
Quarter: 2008Q4

REPORT INFORMATION
  Report Type: 
  Country: None (occurrence: None)
  Receive Date: 20081121
  Receipt Date: 20081114
  Transmission Date: 20090506
  Serious: Yes (Other)
  Sender: FDA-Public Use
  Company Number: US-BAYER-200838626NA

PATIENT
  Sex: Female
  Weight: 108 kg

DRUGS (2)
  1. MIRENA [Suspect]
     Indication: CONTRACEPTION
     Route: 015
     Dates: start: 20081010
  2. MIRENA [Suspect]
     Route: 015

REACTIONS (1)
  - IUCD COMPLICATION [None]
